FAERS Safety Report 15038186 (Version 2)
Quarter: 2018Q3

REPORT INFORMATION
  Report Type: Spontaneous
  Country: CA (occurrence: CA)
  Receive Date: 20180620
  Receipt Date: 20180717
  Transmission Date: 20181010
  Serious: Yes (Other)
  Sender: FDA-Public Use
  Company Number: CA-PFIZER INC-2017544533

PATIENT
  Age: 62 Year
  Sex: Female

DRUGS (4)
  1. PREDNISONE. [Concomitant]
     Active Substance: PREDNISONE
     Dosage: UNK
  2. XELJANZ [Suspect]
     Active Substance: TOFACITINIB CITRATE
     Indication: RHEUMATOID ARTHRITIS
     Dosage: 5 MG, TWICE A DAY
     Route: 048
     Dates: start: 20171204, end: 2018
  3. PREDNISONE. [Concomitant]
     Active Substance: PREDNISONE
     Dosage: 9 MG, DAILY
  4. PREDNISONE. [Concomitant]
     Active Substance: PREDNISONE
     Dosage: 30 MG, UNK

REACTIONS (6)
  - Oropharyngeal pain [Unknown]
  - Headache [Unknown]
  - Systemic lupus erythematosus [Unknown]
  - Drug ineffective [Unknown]
  - Influenza [Not Recovered/Not Resolved]
  - Neuralgia [Not Recovered/Not Resolved]
